FAERS Safety Report 5066860-9 (Version None)
Quarter: 2006Q3

REPORT INFORMATION
  Report Type: 
  Country: None (occurrence: None)
  Receive Date: 20060726
  Receipt Date: 20060721
  Transmission Date: 20061208
  Serious: Yes (Other)
  Sender: FDA-Public Use
  Company Number: AU-2006-003378

PATIENT
  Sex: Male

DRUGS (2)
  1. SOTALOL HYDROCHLORIDE [Suspect]
     Dosage: ORAL
     Route: 048
  2. ANAESTHETICS  () [Suspect]

REACTIONS (1)
  - DEAFNESS UNILATERAL [None]
